FAERS Safety Report 7754039-9 (Version None)
Quarter: 2011Q3

REPORT INFORMATION
  Report Type: 
  Country: None (occurrence: None)
  Receive Date: 20110915
  Receipt Date: 20110909
  Transmission Date: 20111222
  Serious: Yes (Other)
  Sender: FDA-Public Use
  Company Number: US-WATSON-2011-14510

PATIENT
  Age: 82 Year
  Sex: Female

DRUGS (3)
  1. PREDNISONE [Suspect]
     Indication: ARTERITIS
     Dosage: 5 MG, DAILY
     Route: 048
     Dates: start: 20110101
  2. ACIPHEX [Concomitant]
     Indication: PRODUCT USED FOR UNKNOWN INDICATION
     Dosage: PRN
     Route: 048
  3. PREDNISONE [Suspect]
     Indication: LEUKAEMIA
     Dosage: 60 MG, DAILY (INITIALLY 60 MG DAILY AND WEANED TO 5 MG CURRENTLY)
     Route: 048
     Dates: start: 20100901, end: 20110101

REACTIONS (6)
  - LEARNING DISORDER [None]
  - CONFUSIONAL STATE [None]
  - DISORIENTATION [None]
  - DEMENTIA [None]
  - MENTAL STATUS CHANGES [None]
  - AMNESIA [None]
